FAERS Safety Report 7324660-0 (Version None)
Quarter: 2011Q1

REPORT INFORMATION
  Report Type: 
  Country: None (occurrence: None)
  Receive Date: 20110301
  Receipt Date: 20110223
  Transmission Date: 20110831
  Serious: Yes (Death, Other)
  Sender: FDA-Public Use
  Company Number: PHHY2011AU14973

PATIENT

DRUGS (2)
  1. DIAZEPAM [Concomitant]
  2. CLOZAPINE [Suspect]
     Indication: SCHIZOPHRENIA
     Dosage: 300 MG, DAILY

REACTIONS (4)
  - PYREXIA [None]
  - MYOCARDITIS [None]
  - ARTERIOSCLEROSIS CORONARY ARTERY [None]
  - RENAL IMPAIRMENT [None]
